FAERS Safety Report 9206485 (Version 1)
Quarter: 2013Q2

REPORT INFORMATION
  Report Type: Spontaneous
  Country: GR (occurrence: GR)
  Receive Date: 20130403
  Receipt Date: 20130403
  Transmission Date: 20140414
  Serious: Yes (Disabling, Other)
  Sender: FDA-Public Use
  Company Number: PHHY2013GR031998

PATIENT
  Age: 37 Year
  Sex: 0
  Weight: 65 kg

DRUGS (1)
  1. LAMISIL [Suspect]
     Indication: ONYCHOMYCOSIS
     Dosage: 1 DF, QD
     Route: 048
     Dates: start: 20130110

REACTIONS (3)
  - Gait disturbance [Recovering/Resolving]
  - Tinnitus [Recovering/Resolving]
  - Dizziness [Recovering/Resolving]
